FAERS Safety Report 23606029 (Version 1)
Quarter: 2024Q1

REPORT INFORMATION
  Report Type: Spontaneous
  Country: US (occurrence: None)
  Receive Date: 20240307
  Receipt Date: 20240307
  Transmission Date: 20240410
  Serious: Yes (Hospitalization)
  Sender: FDA-Public Use
  Company Number: None

PATIENT
  Sex: Female

DRUGS (11)
  1. ENBREL [Suspect]
     Active Substance: ETANERCEPT
     Indication: Rheumatoid arthritis
     Dates: start: 20171028
  2. ADVAIR DISKU AER [Concomitant]
  3. ALBUTEROL AER HFA [Concomitant]
  4. AZELASTINE DRO [Concomitant]
  5. AZITHROMYCIN [Concomitant]
  6. ELEBREX [Concomitant]
  7. CELECOXIB CAP [Concomitant]
  8. CETIRIZINE HCL [Concomitant]
  9. CLARITHROMYC TAB [Concomitant]
  10. ENBREL SRCLK INJ [Concomitant]
  11. ESCITALOPRAM TAB 10MG [Concomitant]

REACTIONS (3)
  - Influenza [None]
  - Pneumonia [None]
  - Therapy interrupted [None]
